FAERS Safety Report 12188955 (Version 3)
Quarter: 2016Q1

REPORT INFORMATION
  Report Type: Spontaneous
  Country: IN (occurrence: IN)
  Receive Date: 20160317
  Receipt Date: 20160324
  Transmission Date: 20160526
  Serious: Yes (Hospitalization)
  Sender: FDA-Public Use
  Company Number: IN-ASTRAZENECA-2016SE28600

PATIENT
  Sex: Male
  Weight: 54 kg

DRUGS (15)
  1. AZTOR [Concomitant]
     Indication: CORONARY ANGIOPLASTY
     Route: 048
  2. LEVOLIN [Concomitant]
     Route: 045
  3. ASPIRIN. [Concomitant]
     Active Substance: ASPIRIN
     Indication: CORONARY ANGIOPLASTY
     Route: 048
  4. DYTOR [Concomitant]
     Active Substance: TORSEMIDE
     Route: 048
  5. OROFER XT [Concomitant]
     Route: 048
  6. CARDIVAS [Concomitant]
     Route: 048
  7. FAROPENEM [Concomitant]
     Active Substance: FAROPENEM
     Route: 048
  8. RANOZEX [Concomitant]
     Route: 048
  9. NIKORAN [Concomitant]
     Route: 048
  10. MOXIFLOXACIN. [Concomitant]
     Active Substance: MOXIFLOXACIN
     Route: 048
  11. PANTOPRAZOLE [Concomitant]
     Active Substance: PANTOPRAZOLE SODIUM
     Route: 048
  12. LAXIT [Concomitant]
     Dosage: 3 TSF ONCE DAILY AT 10 PM
     Route: 048
  13. BRILINTA [Suspect]
     Active Substance: TICAGRELOR
     Indication: CORONARY ANGIOPLASTY
     Route: 048
     Dates: start: 20160228
  14. NITROCONTIN [Concomitant]
     Indication: CORONARY ANGIOPLASTY
  15. BUDECORT [Concomitant]
     Active Substance: BUDESONIDE
     Route: 045

REACTIONS (3)
  - Haemoptysis [Unknown]
  - Pulmonary oedema [Recovered/Resolved]
  - Pulmonary alveolar haemorrhage [Unknown]

NARRATIVE: CASE EVENT DATE: 20160307
